FAERS Safety Report 5772427-7 (Version None)
Quarter: 2008Q2

REPORT INFORMATION
  Report Type: 
  Country: None (occurrence: None)
  Receive Date: 20080613
  Receipt Date: 20080603
  Transmission Date: 20081010
  Serious: Yes (Hospitalization, Other)
  Sender: FDA-Public Use
  Company Number: US-ELI_LILLY_AND_COMPANY-US200804007206

PATIENT
  Age: 31 Year
  Sex: Male

DRUGS (21)
  1. HUMALOG [Suspect]
     Dates: start: 20010101
  2. HUMALOG [Suspect]
     Dates: start: 20010101
  3. RANITIDINE [Concomitant]
  4. CLONIDINE [Concomitant]
  5. TOPROL-XL [Concomitant]
  6. CALCIUM ACETATE [Concomitant]
  7. PROTONIX [Concomitant]
  8. ENALAPRIL MALEATE [Concomitant]
  9. FOSRENOL [Concomitant]
  10. COZAAR [Concomitant]
  11. DYNACIRC [Concomitant]
  12. SIMVASTATIN [Concomitant]
  13. SODIUM BICARBONATE [Concomitant]
  14. METOCLOPRAMIDE [Concomitant]
  15. TERAZOSIN HCL [Concomitant]
  16. BISOPROLOL FUMARATE [Concomitant]
  17. LEVEMIR [Concomitant]
  18. OXYCODONE HCL [Concomitant]
  19. DIAZEPAM [Concomitant]
  20. CLARINEX [Concomitant]
  21. NOVOLOG [Concomitant]
     Dosage: UNK, 3/D WITH MEALS

REACTIONS (9)
  - BLINDNESS [None]
  - BLOOD GLUCOSE INCREASED [None]
  - DIABETIC KETOACIDOSIS [None]
  - DIABETIC RETINOPATHY [None]
  - DIALYSIS [None]
  - DRUG INEFFECTIVE [None]
  - GLAUCOMA [None]
  - HYPERTENSION [None]
  - RENAL FAILURE [None]
